FAERS Safety Report 7022945-9 (Version None)
Quarter: 2010Q3

REPORT INFORMATION
  Report Type: 
  Country: None (occurrence: None)
  Receive Date: 20100930
  Receipt Date: 20100922
  Transmission Date: 20110219
  Serious: Yes (Other)
  Sender: FDA-Public Use
  Company Number: US-PFIZER INC-2010121020

PATIENT
  Sex: Male

DRUGS (4)
  1. SUTENT [Suspect]
     Indication: METASTATIC RENAL CELL CARCINOMA
     Dosage: 50 MG, 1X/DAY, 4 WKS ON 2 WKS OFF
     Route: 048
  2. ACETYLSALICYLIC ACID [Concomitant]
  3. HYDROCHLOROTHIAZIDE [Concomitant]
  4. AVODART [Concomitant]

REACTIONS (7)
  - ABDOMINAL DISCOMFORT [None]
  - CHILLS [None]
  - FATIGUE [None]
  - FLATULENCE [None]
  - GOUT [None]
  - JAUNDICE [None]
  - PLATELET COUNT DECREASED [None]
